APPROVED DRUG PRODUCT: CLOFARABINE
Active Ingredient: CLOFARABINE
Strength: 20MG/20ML (1MG/ML)
Dosage Form/Route: SOLUTION;INTRAVENOUS
Application: A208857 | Product #001 | TE Code: AP
Applicant: AMNEAL EU LTD
Approved: Nov 6, 2017 | RLD: No | RS: No | Type: RX